FAERS Safety Report 7464381-7 (Version None)
Quarter: 2011Q2

REPORT INFORMATION
  Report Type: 
  Country: None (occurrence: None)
  Receive Date: 20110509
  Receipt Date: 20110502
  Transmission Date: 20111010
  Serious: Yes (Other)
  Sender: FDA-Public Use
  Company Number: US-ROXANE LABORATORIES, INC.-2011-DE-02836GD

PATIENT

DRUGS (1)
  1. ORAMORPH SR [Suspect]

REACTIONS (2)
  - ANAPHYLACTOID REACTION [None]
  - DRUG PRESCRIBING ERROR [None]
